FAERS Safety Report 7466009-9 (Version None)
Quarter: 2011Q2

REPORT INFORMATION
  Report Type: 
  Country: None (occurrence: None)
  Receive Date: 20110509
  Receipt Date: 20100525
  Transmission Date: 20111010
  Serious: No
  Sender: FDA-Public Use
  Company Number: US-ALEXION-A201000606

PATIENT
  Sex: Male

DRUGS (3)
  1. CLARITIN                           /00917501/ [Concomitant]
  2. IRON [Concomitant]
     Route: 048
  3. SOLIRIS [Suspect]
     Indication: PAROXYSMAL NOCTURNAL HAEMOGLOBINURIA
     Dosage: 600 MG, QW
     Route: 042
     Dates: start: 20100521

REACTIONS (1)
  - HEADACHE [None]
